FAERS Safety Report 8173061-4 (Version None)
Quarter: 2012Q1

REPORT INFORMATION
  Report Type: 
  Country: None (occurrence: None)
  Receive Date: 20120104
  Receipt Date: 20111028
  Transmission Date: 20120608
  Serious: No
  Sender: FDA-Public Use
  Company Number: 2011HGS-002565

PATIENT
  Age: 20 Year
  Sex: Female
  Weight: 77.1115 kg

DRUGS (4)
  1. BENLYSTA [Suspect]
     Indication: SYSTEMIC LUPUS ERYTHEMATOSUS
     Dosage: 1 IN 28 D, INTRAVENOUS DRIP
     Route: 041
     Dates: start: 20110606, end: 20110606
  2. MEDROL [Concomitant]
  3. THIAMINE (THIAMINE) (THIAMINE) [Concomitant]
  4. SENTRAVIL PM (AMITRIPTYLINE HYDROCHLORIDE) (AMITRIPTYLINE HYDROCHLORID [Concomitant]

REACTIONS (3)
  - MUSCULAR WEAKNESS [None]
  - JOINT SWELLING [None]
  - PHARYNGEAL OEDEMA [None]
